FAERS Safety Report 7769794-1 (Version None)
Quarter: 2011Q3

REPORT INFORMATION
  Report Type: 
  Country: None (occurrence: None)
  Receive Date: 20110922
  Receipt Date: 20100517
  Transmission Date: 20111222
  Serious: No
  Sender: FDA-Public Use
  Company Number: US-ASTRAZENECA-2010SE48586

PATIENT
  Age: 17172 Day
  Sex: Female
  Weight: 120.7 kg

DRUGS (9)
  1. EFFEXOR XR [Concomitant]
     Dates: start: 20011214
  2. HYDROXYZINE [Concomitant]
     Dates: start: 20040302
  3. LORAZEPAM [Concomitant]
     Dates: start: 20020104
  4. CELEBREX [Concomitant]
     Dates: start: 20020114
  5. ACIPHEX [Concomitant]
     Dates: start: 20020104
  6. NORVASC [Concomitant]
     Dates: start: 20020104
  7. SEROQUEL [Suspect]
     Route: 048
     Dates: start: 20011214
  8. TARKA [Concomitant]
     Dosage: 2/240 MG
     Dates: start: 20020104
  9. HYDROCHLOROTHIAZIDE [Concomitant]
     Dates: start: 20020104

REACTIONS (7)
  - HYPERTENSION [None]
  - ANXIETY [None]
  - FIBROMYALGIA [None]
  - TYPE 2 DIABETES MELLITUS [None]
  - DEPRESSION [None]
  - CYSTITIS [None]
  - OSTEOARTHRITIS [None]
